FAERS Safety Report 13257535 (Version 1)
Quarter: 2017Q1

REPORT INFORMATION
  Report Type: Spontaneous
  Country: FR (occurrence: FR)
  Receive Date: 20170221
  Receipt Date: 20170221
  Transmission Date: 20170428
  Serious: Yes (Disabling)
  Sender: FDA-Public Use
  Company Number: FR-EMD SERONO-8142717

PATIENT
  Age: 34 Year
  Sex: Male

DRUGS (4)
  1. CHORIONIC GONADOTROPHIN [Suspect]
     Active Substance: CHORIOGONADOTROPIN ALFA
     Indication: INFERTILITY
     Route: 058
     Dates: start: 201501, end: 201502
  2. CHORIONIC GONADOTROPHIN [Suspect]
     Active Substance: CHORIOGONADOTROPIN ALFA
     Dosage: RESUMED IN OCT 2015.
     Route: 058
     Dates: end: 201511
  3. GONAL-F [Suspect]
     Active Substance: FOLLITROPIN
     Indication: INFERTILITY
     Route: 058
     Dates: start: 201501, end: 201502
  4. GONAL-F [Suspect]
     Active Substance: FOLLITROPIN
     Dosage: RESUMED IN OCT 2015.
     Route: 058
     Dates: end: 201511

REACTIONS (2)
  - Sudden hearing loss [Recovered/Resolved with Sequelae]
  - Ear pain [Recovered/Resolved]

NARRATIVE: CASE EVENT DATE: 201501
